FAERS Safety Report 18718063 (Version 2)
Quarter: 2021Q1

REPORT INFORMATION
  Report Type: Spontaneous
  Country: TR (occurrence: TR)
  Receive Date: 20210108
  Receipt Date: 20210122
  Transmission Date: 20210419
  Serious: Yes (Other)
  Sender: FDA-Public Use
  Company Number: NVSC2020TR348313

PATIENT
  Age: 4 Month
  Sex: Male

DRUGS (3)
  1. SANDOSTATIN [Suspect]
     Active Substance: OCTREOTIDE ACETATE
     Indication: BLOOD GLUCOSE
     Dosage: UNK UNK, QID (4 TIMES A DAY/ EVERY 6 HOURS) (FORMULATION AMPOULE)
     Route: 065
  2. SANDOSTATIN [Suspect]
     Active Substance: OCTREOTIDE ACETATE
  3. SANDOSTATIN [Suspect]
     Active Substance: OCTREOTIDE ACETATE

REACTIONS (4)
  - Pancreatic mass [Unknown]
  - Product use in unapproved indication [Unknown]
  - Blood glucose decreased [Unknown]
  - Product availability issue [Unknown]
